FAERS Safety Report 11802352 (Version 1)
Quarter: 2015Q4

REPORT INFORMATION
  Report Type: Spontaneous
  Country: US (occurrence: US)
  Receive Date: 20151204
  Receipt Date: 20151204
  Transmission Date: 20160305
  Serious: No
  Sender: FDA-Public Use
  Company Number: US-BAYER-2015-041649

PATIENT
  Age: 71 Year
  Sex: Female
  Weight: 89.8 kg

DRUGS (7)
  1. ATENOLOL. [Concomitant]
     Active Substance: ATENOLOL
     Indication: BLOOD PRESSURE ABNORMAL
  2. VALSARTAN. [Concomitant]
     Active Substance: VALSARTAN
     Indication: BLOOD PRESSURE ABNORMAL
  3. MICRONASE [Concomitant]
     Active Substance: GLYBURIDE
     Indication: DIABETES MELLITUS
  4. OXYBUTYNIN [Suspect]
     Active Substance: OXYBUTYNIN
     Indication: STRESS URINARY INCONTINENCE
     Dosage: 1 DF, OW
     Route: 062
     Dates: start: 20140503, end: 20140515
  5. ULTRAM [Concomitant]
     Active Substance: TRAMADOL HYDROCHLORIDE
     Indication: ARTHRITIS
  6. ZOCOR [Concomitant]
     Active Substance: SIMVASTATIN
     Indication: BLOOD CHOLESTEROL ABNORMAL
  7. TYLENOL [Concomitant]
     Active Substance: ACETAMINOPHEN
     Indication: ARTHRITIS

REACTIONS (3)
  - Product use issue [Unknown]
  - Device material issue [Unknown]
  - Therapeutic response decreased [Unknown]

NARRATIVE: CASE EVENT DATE: 201405
